FAERS Safety Report 19406210 (Version 1)
Quarter: 2021Q2

REPORT INFORMATION
  Report Type: Spontaneous
  Country: DE (occurrence: DE)
  Receive Date: 20210611
  Receipt Date: 20210611
  Transmission Date: 20210717
  Serious: Yes (Hospitalization)
  Sender: FDA-Public Use
  Company Number: DE-TEVA-2021-DE-1919829

PATIENT
  Age: 68 Year
  Sex: Female

DRUGS (12)
  1. SPIRIVA [Concomitant]
     Active Substance: TIOTROPIUM BROMIDE MONOHYDRATE
     Dosage: 18 MICROGRAM DAILY;
     Route: 055
  2. PRAMIPEXOL [Concomitant]
     Active Substance: PRAMIPEXOLE
     Dosage: .7 MILLIGRAM DAILY; 1?0?1?0
     Route: 048
  3. NEBIVOLOL. [Suspect]
     Active Substance: NEBIVOLOL
     Dosage: 5 MILLIGRAM DAILY;  1?0?0?0
     Route: 048
  4. METAMIZOL [Concomitant]
     Active Substance: METAMIZOLE SODIUM
     Dosage: 1500 MILLIGRAM DAILY;  1?1?1?0
     Route: 048
  5. RAMIPRIL. [Concomitant]
     Active Substance: RAMIPRIL
     Dosage: 5 MILLIGRAM DAILY; 1?0?0?0
     Route: 048
  6. CARBAMAZEPIN [Concomitant]
     Active Substance: CARBAMAZEPINE
     Dosage: 200 MILLIGRAM DAILY;  1?0?0?0
     Route: 048
  7. SIMVASTATIN. [Concomitant]
     Active Substance: SIMVASTATIN
     Dosage: 20 MILLIGRAM DAILY; 0?0?1?0
     Route: 048
  8. TILIDIN 150/12 RETARD?1A PHARMA [Concomitant]
     Dosage: 2 DOSAGE FORMS DAILY; 12 | 150 MG, 1?0?1?0
     Route: 048
  9. ACETYLSALICYLSAURE [Concomitant]
     Active Substance: ASPIRIN
     Dosage: 100 MILLIGRAM DAILY;  1?0?0?0
     Route: 048
  10. KALINOR RETARD [Concomitant]
     Active Substance: POTASSIUM CHLORIDE
     Dosage: 1 DOSAGE FORMS DAILY; 1?0?0?0
     Route: 048
  11. VIGANTOLETTEN 1000I.E. [Concomitant]
     Active Substance: CHOLECALCIFEROL
     Dosage: 1000 IU (INTERNATIONAL UNIT) DAILY; 1?0?0?0
     Route: 048
  12. DUORESP SPIROMAX 160MIKROGRAMM/4,5MIKROGRAMM [Concomitant]
     Dosage: 2 DOSAGE FORMS DAILY; 160 | 4.5 UG, 1?0?1?0
     Route: 055

REACTIONS (4)
  - Dyspnoea [Unknown]
  - General physical health deterioration [Unknown]
  - Cough [Unknown]
  - Tachypnoea [Unknown]
